FAERS Safety Report 7238216-1 (Version None)
Quarter: 2011Q1

REPORT INFORMATION
  Report Type: 
  Country: None (occurrence: None)
  Receive Date: 20110121
  Receipt Date: 20110118
  Transmission Date: 20110831
  Serious: No
  Sender: FDA-Public Use
  Company Number: US-PFIZER INC-2010096899

PATIENT
  Sex: Male

DRUGS (2)
  1. DIFLUCAN [Suspect]
     Indication: FUNGAL INFECTION
     Dosage: UNK
  2. FLAGYL [Suspect]
     Dosage: UNK

REACTIONS (2)
  - ORAL FUNGAL INFECTION [None]
  - PROSTATIC SPECIFIC ANTIGEN DECREASED [None]
